FAERS Safety Report 25135263 (Version 3)
Quarter: 2025Q2

REPORT INFORMATION
  Report Type: Spontaneous
  Country: AT (occurrence: AT)
  Receive Date: 20250328
  Receipt Date: 20250510
  Transmission Date: 20250716
  Serious: Yes (Death)
  Sender: IPSEN BIOPHARMACEUTICALS, INC.
  Company Number: AT-SERVIER-S25003995

PATIENT
  Age: 64 Year
  Sex: Male

DRUGS (4)
  1. ONIVYDE [Suspect]
     Active Substance: IRINOTECAN HYDROCHLORIDE
     Indication: Ductal adenocarcinoma of pancreas
     Dosage: 50 MG/M2, EVERY 2 WEEKS
     Route: 042
     Dates: start: 20250228, end: 20250228
  2. OXALIPLATIN [Concomitant]
     Active Substance: OXALIPLATIN
     Indication: Ductal adenocarcinoma of pancreas
     Dosage: 60 MG/M2, EVERY 2 WEEKS
     Route: 042
     Dates: start: 20250228, end: 20250228
  3. FLUOROURACIL [Concomitant]
     Active Substance: FLUOROURACIL
     Indication: Ductal adenocarcinoma of pancreas
     Dosage: 2040 MG/M2, EVERY 2 WEEKS
     Route: 042
     Dates: start: 20250228, end: 20250228
  4. LEUCOVORIN [Concomitant]
     Active Substance: LEUCOVORIN\LEUCOVORIN CALCIUM
     Indication: Ductal adenocarcinoma of pancreas
     Dosage: 400 MG/M2, EVERY 2 WEEKS
     Route: 065
     Dates: start: 20250228, end: 20250228

REACTIONS (4)
  - Peritonitis [Fatal]
  - Post procedural sepsis [Fatal]
  - Gastrostomy tube site complication [Fatal]
  - Renal failure [Fatal]

NARRATIVE: CASE EVENT DATE: 20250312
